FAERS Safety Report 16435130 (Version 3)
Quarter: 2019Q4

REPORT INFORMATION
  Report Type: Report from Study
  Country: PA (occurrence: PA)
  Receive Date: 20190614
  Receipt Date: 20191020
  Transmission Date: 20200122
  Serious: Yes (Other)
  Sender: FDA-Public Use
  Company Number: PHHY2019PA125793

PATIENT
  Sex: Male
  Weight: 86.17 kg

DRUGS (2)
  1. GILENYA [Suspect]
     Active Substance: FINGOLIMOD HYDROCHLORIDE
     Indication: MULTIPLE SCLEROSIS
     Dosage: 0.5 MG, QD
     Route: 065
     Dates: start: 20190516
  2. COVERSYL [Concomitant]
     Active Substance: PERINDOPRIL
     Indication: PRODUCT USED FOR UNKNOWN INDICATION
     Dosage: 5 MG, QD
     Route: 065

REACTIONS (9)
  - Disturbance in attention [Unknown]
  - Optic neuritis [Unknown]
  - Sciatic nerve injury [Unknown]
  - Nervous system disorder [Unknown]
  - Diplopia [Unknown]
  - Multiple sclerosis relapse [Unknown]
  - Feeling abnormal [Recovering/Resolving]
  - Visual impairment [Recovering/Resolving]
  - Balance disorder [Not Recovered/Not Resolved]
